FAERS Safety Report 12103806 (Version 1)
Quarter: 2016Q1

REPORT INFORMATION
  Report Type: Spontaneous
  Country: US (occurrence: US)
  Receive Date: 20160223
  Receipt Date: 20160223
  Transmission Date: 20160526
  Serious: Yes (Other)
  Sender: FDA-Public Use
  Company Number: US-ROCHE-1712223

PATIENT
  Age: 18 Year
  Sex: Female

DRUGS (1)
  1. TAMIFLU [Suspect]
     Active Substance: OSELTAMIVIR PHOSPHATE
     Indication: INFLUENZA
     Route: 048
     Dates: start: 20160212, end: 20160213

REACTIONS (9)
  - Hallucination [Unknown]
  - Abasia [Unknown]
  - Abdominal discomfort [Unknown]
  - Dizziness [Unknown]
  - Pyrexia [Not Recovered/Not Resolved]
  - Agitation [Unknown]
  - Nausea [Unknown]
  - Aphasia [Not Recovered/Not Resolved]
  - Vomiting [Recovered/Resolved]

NARRATIVE: CASE EVENT DATE: 20160212
